FAERS Safety Report 25491707 (Version 3)
Quarter: 2025Q3

REPORT INFORMATION
  Report Type: Spontaneous
  Country: US (occurrence: US)
  Receive Date: 20250630
  Receipt Date: 20250822
  Transmission Date: 20251021
  Serious: Yes (Hospitalization)
  Sender: UCB
  Company Number: US-UCBSA-2025038457

PATIENT
  Sex: Female

DRUGS (1)
  1. BIMZELX [Suspect]
     Active Substance: BIMEKIZUMAB-BKZX
     Indication: Psoriasis
     Dosage: 320 MILLIGRAM, EV 4 WEEKS
     Route: 058
     Dates: start: 202504, end: 2025

REACTIONS (3)
  - Abdominal pain lower [Unknown]
  - Adverse drug reaction [Unknown]
  - Intentional dose omission [Unknown]

NARRATIVE: CASE EVENT DATE: 20250101
